FAERS Safety Report 5718139-7 (Version None)
Quarter: 2008Q2

REPORT INFORMATION
  Report Type: 
  Country: None (occurrence: None)
  Receive Date: 20080425
  Receipt Date: 20080422
  Transmission Date: 20081010
  Serious: Yes (Hospitalization)
  Sender: FDA-Public Use
  Company Number: FR-RB-000924-08

PATIENT
  Age: 30 Year
  Sex: Male

DRUGS (1)
  1. SUBUTEX [Suspect]
     Indication: DRUG USE FOR UNKNOWN INDICATION
     Dosage: DOSE UNKNOWN. PATIENT DILUTED SUBUTEX IN WATER AND INJECTED IN BY THE SUBCUTANEOUS ROUTE
     Route: 058

REACTIONS (3)
  - INJECTION SITE REACTION [None]
  - SACROILIITIS [None]
  - SUBSTANCE ABUSE [None]
